FAERS Safety Report 4710690-1 (Version None)
Quarter: 2005Q3

REPORT INFORMATION
  Report Type: 
  Country: None (occurrence: None)
  Receive Date: 20050711
  Receipt Date: 20030113
  Transmission Date: 20060218
  Serious: Yes (Hospitalization, Other)
  Sender: FDA-Public Use
  Company Number: US-MERCK-0301USA01113

PATIENT
  Age: 40 Year
  Sex: Male
  Weight: 68 kg

DRUGS (5)
  1. PLAVIX [Suspect]
     Route: 065
     Dates: start: 20001205
  2. VITAMINS (UNSPECIFIED) [Concomitant]
     Route: 065
  3. ASPIRIN [Concomitant]
     Route: 065
  4. VIOXX [Suspect]
     Indication: PAIN
     Route: 048
     Dates: start: 20000529
  5. COUMADIN [Suspect]
     Route: 065

REACTIONS (12)
  - ANGIOPATHY [None]
  - CEREBROVASCULAR ACCIDENT [None]
  - CHEST PAIN [None]
  - DIZZINESS [None]
  - DYSPNOEA [None]
  - DYSPNOEA EXERTIONAL [None]
  - EXOSTOSIS [None]
  - HYPERLIPIDAEMIA [None]
  - LOSS OF CONSCIOUSNESS [None]
  - PYREXIA [None]
  - RENAL FAILURE [None]
  - VARICOSE VEIN [None]
